FAERS Safety Report 18392031 (Version 1)
Quarter: 2020Q4

REPORT INFORMATION
  Report Type: Spontaneous
  Country: US (occurrence: US)
  Receive Date: 20201016
  Receipt Date: 20201016
  Transmission Date: 20210114
  Serious: Yes (Hospitalization)
  Sender: FDA-Public Use
  Company Number: US-TEVA-2020-US-1839110

PATIENT
  Age: 74 Year
  Sex: Female

DRUGS (21)
  1. AMANTADINE. [Concomitant]
     Active Substance: AMANTADINE HYDROCHLORIDE
  2. PRAVASTATIN. [Concomitant]
     Active Substance: PRAVASTATIN
  3. PANTOPRAZOLE [Concomitant]
     Active Substance: PANTOPRAZOLE
  4. SINGULAIR [Concomitant]
     Active Substance: MONTELUKAST SODIUM
  5. VENLAFAXINE [Concomitant]
     Active Substance: VENLAFAXINE HYDROCHLORIDE
  6. FUROSEMIDE. [Concomitant]
     Active Substance: FUROSEMIDE
  7. LISINOPRIL. [Concomitant]
     Active Substance: LISINOPRIL
  8. CIPROFLOXACIN. [Concomitant]
     Active Substance: CIPROFLOXACIN
  9. METOCLOPRAM [Concomitant]
     Active Substance: METOCLOPRAMIDE
  10. CLONIDINE. [Concomitant]
     Active Substance: CLONIDINE
  11. ASPIRIN. [Concomitant]
     Active Substance: ASPIRIN
  12. MUCINEX [Concomitant]
     Active Substance: GUAIFENESIN
  13. CYCLOBENZAPRINE. [Concomitant]
     Active Substance: CYCLOBENZAPRINE
  14. POTASSIUM [Concomitant]
     Active Substance: POTASSIUM
  15. CEPHALEXIN. [Concomitant]
     Active Substance: CEPHALEXIN
  16. PRIMIDONE. [Concomitant]
     Active Substance: PRIMIDONE
  17. BISOPROL [Concomitant]
     Active Substance: BISOPROLOL FUMARATE
  18. COPAXONE [Suspect]
     Active Substance: GLATIRAMER ACETATE
     Indication: MULTIPLE SCLEROSIS
     Route: 058
     Dates: start: 20191109
  19. LYRICA [Concomitant]
     Active Substance: PREGABALIN
  20. LIPITOR [Concomitant]
     Active Substance: ATORVASTATIN CALCIUM
  21. METRONIDAZOLE. [Concomitant]
     Active Substance: METRONIDAZOLE

REACTIONS (1)
  - Decubitus ulcer [Not Recovered/Not Resolved]

NARRATIVE: CASE EVENT DATE: 202009
